FAERS Safety Report 9850082 (Version 1)
Quarter: 2013Q4

REPORT INFORMATION
  Report Type: Spontaneous
  Country: US (occurrence: None)
  Receive Date: 20131226
  Receipt Date: 20131226
  Transmission Date: 20140711
  Serious: Yes (Disabling)
  Sender: FDA-Public Use
  Company Number: PHEH2013US009566

PATIENT
  Age: 57 Year
  Sex: Male
  Weight: 75.9 kg

DRUGS (1)
  1. SANDOSTATIN [Suspect]
     Indication: CARCINOID SYNDROME
     Route: 058
     Dates: start: 20130301, end: 20130401

REACTIONS (1)
  - Dizziness [None]
